FAERS Safety Report 12775221 (Version 1)
Quarter: 2016Q3

REPORT INFORMATION
  Report Type: Spontaneous
  Country: US (occurrence: US)
  Receive Date: 20160921
  Receipt Date: 20160921
  Transmission Date: 20161109
  Serious: No
  Sender: FDA-Public Use
  Company Number: None

PATIENT
  Age: 81 Year
  Sex: Male

DRUGS (6)
  1. PANTOPRAZOLE [Concomitant]
     Active Substance: PANTOPRAZOLE SODIUM
  2. XARELTO [Concomitant]
     Active Substance: RIVAROXABAN
  3. NUPLAZID [Suspect]
     Active Substance: PIMAVANSERIN TARTRATE
     Indication: PARKINSON^S DISEASE
     Route: 048
     Dates: start: 201608
  4. MYRBETRIQ [Concomitant]
     Active Substance: MIRABEGRON
  5. CARB/LEVO [Concomitant]
     Active Substance: CARBIDOPA\LEVODOPA
  6. FINASTERIDE. [Concomitant]
     Active Substance: FINASTERIDE

REACTIONS (3)
  - Gait disturbance [None]
  - Peripheral swelling [None]
  - Musculoskeletal disorder [None]

NARRATIVE: CASE EVENT DATE: 20160921
